FAERS Safety Report 8799171 (Version 4)
Quarter: 2012Q4

REPORT INFORMATION
  Report Type: 
  Country: GR (occurrence: GR)
  Receive Date: 20120920
  Receipt Date: 20121214
  Transmission Date: 20130627
  Serious: Yes (Death, Life-Threatening, Other)
  Sender: FDA-Public Use
  Company Number: GR-BAXTER-2012BAX017187

PATIENT
  Age: 64 Year
  Sex: Male

DRUGS (2)
  1. FLEXBUMIN 250 G/L SOLUTION FOR INFUSION [Suspect]
     Indication: HYPOALBUMINAEMIA
     Route: 042
     Dates: start: 20120907, end: 20120907
  2. FLEXBUMIN 250 G/L SOLUTION FOR INFUSION [Suspect]
     Route: 042
     Dates: start: 20120906, end: 20120906

REACTIONS (5)
  - Haemorrhagic stroke [Fatal]
  - Brain death [Fatal]
  - Generalised erythema [Unknown]
  - Anaphylactic shock [Recovered/Resolved]
  - Hypotension [Recovered/Resolved]
